FAERS Safety Report 8851751 (Version 1)
Quarter: 2012Q4

REPORT INFORMATION
  Report Type: Spontaneous
  Country: US (occurrence: None)
  Receive Date: 20121017
  Receipt Date: 20121017
  Transmission Date: 20130627
  Serious: Yes (Hospitalization)
  Sender: FDA-Public Use
  Company Number: USA/USA/12/0026212

PATIENT
  Age: 58 Year
  Sex: Male

DRUGS (7)
  1. ALLOPURINOL [Suspect]
     Indication: DRUG USE FOR UNKNOWN INDICATION
  2. CARVEDILOL [Concomitant]
  3. SIMVASTATIN [Concomitant]
  4. CLOPIDOGREL BISULFATE (CLOPIDOGREL) [Concomitant]
  5. FUROSEMIDE [Concomitant]
  6. COLCHICINE [Concomitant]
  7. ASPIRIN (ACETYLSALICYLIC ACID) [Concomitant]

REACTIONS (8)
  - Renal failure acute [None]
  - Gastroenteritis [None]
  - Gastric haemorrhage [None]
  - Accidental overdose [None]
  - Chest pain [None]
  - Vomiting [None]
  - Rectal haemorrhage [None]
  - Renal cyst [None]
